FAERS Safety Report 7911619-5 (Version None)
Quarter: 2011Q4

REPORT INFORMATION
  Report Type: 
  Country: None (occurrence: None)
  Receive Date: 20111114
  Receipt Date: 20111114
  Transmission Date: 20120403
  Serious: Yes (Life-Threatening, Hospitalization, Other)
  Sender: FDA-Public Use
  Company Number: None

PATIENT
  Age: 57 Year
  Sex: Female
  Weight: 99.79 kg

DRUGS (1)
  1. NAPROXEN [Suspect]
     Indication: JOINT INJURY
     Dosage: 1 TABLET
     Route: 048
     Dates: start: 20110830, end: 20110915

REACTIONS (1)
  - CEREBROVASCULAR ACCIDENT [None]
